FAERS Safety Report 8003210-X (Version None)
Quarter: 2011Q4

REPORT INFORMATION
  Report Type: 
  Country: None (occurrence: None)
  Receive Date: 20111222
  Receipt Date: 20111216
  Transmission Date: 20120403
  Serious: Yes (Hospitalization)
  Sender: FDA-Public Use
  Company Number: PHHY2011VE110979

PATIENT
  Sex: Female

DRUGS (7)
  1. ZOLEDRONOC ACID [Suspect]
     Dosage: 5MG/ IV ROUTE ONCE A YEAR
     Route: 042
     Dates: start: 20101001
  2. GLUCOVANCE [Concomitant]
     Dosage: UNK UKN, ONCE/SINGLE
  3. ZOLEDRONOC ACID [Suspect]
     Dosage: 5MG/ IV ROUTE ONCE A YEAR
     Route: 042
     Dates: start: 20090101
  4. FOLIC ACID [Concomitant]
     Dosage: UNK UKN, ONCE/SINGLE
  5. ZOLEDRONOC ACID [Suspect]
     Dosage: 5MG/ IV ROUTE ONCE A YEAR
     Route: 042
     Dates: start: 20111201
  6. GLUCOSAMINE SULFATE W/CHONDROITIN [Concomitant]
     Indication: CHONDROPATHY
  7. ALTACE [Concomitant]
     Indication: HYPERTENSION
     Dosage: 5 MG, ONCE/SINGLE

REACTIONS (2)
  - BONE PAIN [None]
  - LOWER LIMB FRACTURE [None]
